FAERS Safety Report 6998179-0 (Version None)
Quarter: 2010Q3

REPORT INFORMATION
  Report Type: 
  Country: None (occurrence: None)
  Receive Date: 20100920
  Receipt Date: 20091028
  Transmission Date: 20110219
  Serious: No
  Sender: FDA-Public Use
  Company Number: US-ASTRAZENECA-2009SE23056

PATIENT
  Age: 29 Year
  Sex: Female
  Weight: 54.4 kg

DRUGS (3)
  1. SEROQUEL [Suspect]
     Route: 048
     Dates: start: 20091021
  2. SEROQUEL [Suspect]
     Route: 048
  3. LEXAPRO [Concomitant]

REACTIONS (2)
  - APATHY [None]
  - FATIGUE [None]
